FAERS Safety Report 5225358-5 (Version None)
Quarter: 2007Q1

REPORT INFORMATION
  Report Type: 
  Country: None (occurrence: None)
  Receive Date: 20070131
  Receipt Date: 20070126
  Transmission Date: 20070707
  Serious: Yes (Hospitalization)
  Sender: FDA-Public Use
  Company Number: US-ROXANE LABORATORIES, INC-2007-BP-01287RO

PATIENT
  Sex: Female
  Weight: 71.8 kg

DRUGS (5)
  1. PREDNISONE [Suspect]
     Route: 048
     Dates: start: 20060401
  2. REBIF [Suspect]
     Indication: MULTIPLE SCLEROSIS
     Dosage: 8.8 MCG, 3 TIMES/WEEK
     Route: 058
     Dates: start: 20060417, end: 20060427
  3. ZITHROMYCIN [Suspect]
     Route: 048
     Dates: start: 20060416, end: 20060417
  4. BACTRIM [Suspect]
     Route: 048
     Dates: start: 20060418
  5. IBUPROFEN [Concomitant]
     Indication: PREMEDICATION
     Route: 048
     Dates: start: 20060417, end: 20060424

REACTIONS (9)
  - BLISTER [None]
  - CLOSTRIDIAL INFECTION [None]
  - DEHYDRATION [None]
  - DRUG HYPERSENSITIVITY [None]
  - DYSPHAGIA [None]
  - EYE SWELLING [None]
  - HEPATIC ENZYME INCREASED [None]
  - STEVENS-JOHNSON SYNDROME [None]
  - STOMATITIS [None]
